FAERS Safety Report 17830665 (Version 2)
Quarter: 2020Q2

REPORT INFORMATION
  Report Type: Spontaneous
  Country: IE (occurrence: IE)
  Receive Date: 20200527
  Receipt Date: 20200608
  Transmission Date: 20200714
  Serious: Yes (Death, Other)
  Sender: FDA-Public Use
  Company Number: IE-MYLANLABS-2020M1052550

PATIENT
  Age: 57 Year
  Sex: Male

DRUGS (6)
  1. SALAMOL EASI-BREATHE [Concomitant]
     Active Substance: ALBUTEROL
     Dosage: 100 MCG AND 2 PUFFS
     Route: 048
  2. CALCICHEW D3 FORTE [Concomitant]
     Active Substance: CALCIUM\CHOLECALCIFEROL
     Dosage: 1 DOSAGE FORM, QD
     Route: 048
  3. OMEPRAZOLE. [Concomitant]
     Active Substance: OMEPRAZOLE
     Dosage: 20 MILLIGRAM, QD
     Route: 048
  4. BECLAZONE                          /00212602/ [Concomitant]
     Dosage: 100 MICROGRAM, PRN
     Route: 048
  5. MOVICOL [Concomitant]
     Active Substance: POLYETHYLENE GLYCOL 3350\POTASSIUM CHLORIDE\SODIUM BICARBONATE\SODIUM CHLORIDE
     Dosage: UNK, PRN
     Route: 048
  6. CLOZARIL [Suspect]
     Active Substance: CLOZAPINE
     Indication: SCHIZOPHRENIA
     Dosage: 500 MILLIGRAM, QD (100 MG MANE AND 400 MG NOCTE)
     Route: 048
     Dates: start: 20030430

REACTIONS (4)
  - Haematemesis [Unknown]
  - Abdominal pain [Unknown]
  - Death [Fatal]
  - Fall [Unknown]

NARRATIVE: CASE EVENT DATE: 20200522
